FAERS Safety Report 6376677-0 (Version None)
Quarter: 2009Q3

REPORT INFORMATION
  Report Type: 
  Country: None (occurrence: None)
  Receive Date: 20090922
  Receipt Date: 20090922
  Transmission Date: 20100115
  Serious: Yes (Other)
  Sender: FDA-Public Use
  Company Number: None

PATIENT
  Sex: Female
  Weight: 61.2356 kg

DRUGS (1)
  1. CITALOPRAM HYDROBROMIDE [Suspect]
     Indication: POST-TRAUMATIC STRESS DISORDER
     Dosage: 1 DAILY PO
     Route: 048
     Dates: start: 20090315, end: 20090901

REACTIONS (4)
  - DIZZINESS [None]
  - IMPAIRED WORK ABILITY [None]
  - NAUSEA [None]
  - WITHDRAWAL SYNDROME [None]
